FAERS Safety Report 8187108-2 (Version None)
Quarter: 2012Q1

REPORT INFORMATION
  Report Type: 
  Country: None (occurrence: None)
  Receive Date: 20120306
  Receipt Date: 20120227
  Transmission Date: 20120608
  Serious: Yes (Other)
  Sender: FDA-Public Use
  Company Number: US-BAYER-2012-019747

PATIENT

DRUGS (3)
  1. ALEVE (CAPLET) [Suspect]
     Indication: EXOSTOSIS
  2. PREDNISONE TAB [Concomitant]
     Indication: EXOSTOSIS
  3. CORTISONE ACETATE [Concomitant]
     Indication: EXOSTOSIS

REACTIONS (2)
  - OEDEMA [None]
  - GASTRITIS [None]
